FAERS Safety Report 12197807 (Version 1)
Quarter: 2016Q1

REPORT INFORMATION
  Report Type: Spontaneous
  Country: None (occurrence: None)
  Receive Date: 20160321
  Receipt Date: 20160321
  Transmission Date: 20160526
  Serious: No
  Sender: FDA-Public Use
  Company Number: None

PATIENT
  Age: 60 Year
  Sex: Female
  Weight: 81.65 kg

DRUGS (5)
  1. ARMOUR THYROID [Concomitant]
     Active Substance: THYROID, PORCINE
  2. SYNTHROID [Concomitant]
     Active Substance: LEVOTHYROXINE SODIUM
  3. WELLBUTRIN SR [Concomitant]
     Active Substance: BUPROPION HYDROCHLORIDE
  4. NEXIUM [Concomitant]
     Active Substance: ESOMEPRAZOLE MAGNESIUM
  5. NEOMYCIN-POLYMYXIN B EAR SOLUTI 10 ML BAUSCH + LOMB [Suspect]
     Active Substance: HYDROCORTISONE\NEOMYCIN SULFATE\POLYMYXIN B SULFATE
     Indication: EAR INFECTION
     Dosage: 3 DROPS FOUR TIMES DAILY INTO THE EAR
     Dates: start: 20160305, end: 20160308

REACTIONS (1)
  - Deafness unilateral [None]

NARRATIVE: CASE EVENT DATE: 20160308
